FAERS Safety Report 23215454 (Version 5)
Quarter: 2024Q2

REPORT INFORMATION
  Report Type: Spontaneous
  Country: US (occurrence: US)
  Receive Date: 20231122
  Receipt Date: 20240402
  Transmission Date: 20240715
  Serious: Yes (Hospitalization, Other)
  Sender: FDA-Public Use
  Company Number: US-BRISTOL-MYERS SQUIBB COMPANY-2023-164643

PATIENT
  Age: 76 Year
  Sex: Female
  Weight: 71.67 kg

DRUGS (1)
  1. POMALYST [Suspect]
     Active Substance: POMALIDOMIDE
     Indication: Plasma cell myeloma
     Dosage: 1-21DON,1WKOFF, 3WKSON/1WKOFF
     Route: 048

REACTIONS (8)
  - Renal disorder [Recovering/Resolving]
  - Fistula [Recovering/Resolving]
  - Respiratory disorder [Unknown]
  - Nasopharyngitis [Unknown]
  - Cough [Unknown]
  - Headache [Unknown]
  - Insurance issue [Unknown]
  - Therapy interrupted [Unknown]
